FAERS Safety Report 6145672-9 (Version None)
Quarter: 2009Q2

REPORT INFORMATION
  Report Type: 
  Country: None (occurrence: None)
  Receive Date: 20090407
  Receipt Date: 20090326
  Transmission Date: 20091009
  Serious: Yes (Hospitalization)
  Sender: FDA-Public Use
  Company Number: JP-JNJFOC-20090106476

PATIENT
  Age: 24 Year
  Sex: Female
  Weight: 61 kg

DRUGS (8)
  1. REMICADE [Suspect]
     Route: 042
  2. REMICADE [Suspect]
     Indication: CROHN'S DISEASE
     Route: 042
  3. STERIODS [Concomitant]
     Indication: PROPHYLAXIS
  4. PENTASA [Concomitant]
     Route: 048
  5. PENTASA [Concomitant]
     Indication: CROHN'S DISEASE
     Route: 048
  6. ELENTAL [Concomitant]
     Route: 048
  7. SOLU-CORTEF [Concomitant]
  8. SOLU-CORTEF [Concomitant]
     Indication: PREMEDICATION

REACTIONS (4)
  - ARTHRALGIA [None]
  - CONVERSION DISORDER [None]
  - MALAISE [None]
  - PANIC ATTACK [None]
